FAERS Safety Report 14931682 (Version 4)
Quarter: 2021Q1

REPORT INFORMATION
  Report Type: Report from Study
  Country: FR (occurrence: FR)
  Receive Date: 20180524
  Receipt Date: 20210128
  Transmission Date: 20210419
  Serious: Yes (Death, Hospitalization, Other)
  Sender: FDA-Public Use
  Company Number: FR-JAZZ-2018-FR-008150

PATIENT

DRUGS (6)
  1. TRIFLUCAN [Concomitant]
     Active Substance: FLUCONAZOLE
     Indication: HYPERTHERMIA
     Dosage: 200 MG, QD
     Route: 042
     Dates: start: 20170207, end: 201703
  2. AXEPIM [Concomitant]
     Active Substance: CEFEPIME HYDROCHLORIDE
     Indication: HYPERTHERMIA
     Dosage: 2 G, BID
     Route: 042
     Dates: start: 20170209, end: 201703
  3. DEFITELIO [Suspect]
     Active Substance: DEFIBROTIDE SODIUM
     Indication: PROPHYLAXIS
     Dosage: 23.5 MG/KG, QD
     Route: 042
     Dates: start: 20170207, end: 20170228
  4. ESOMEPRAZOLE MAGNESIUM. [Concomitant]
     Active Substance: ESOMEPRAZOLE MAGNESIUM
     Indication: PROPHYLAXIS
     Dosage: 20 MG, QD
     Route: 048
     Dates: start: 20170207, end: 201703
  5. ZYVOXID [Concomitant]
     Active Substance: LINEZOLID
     Indication: HYPERTHERMIA
     Dosage: 600 MG, BID
     Route: 042
     Dates: start: 20170217, end: 201703
  6. DEFITELIO [Suspect]
     Active Substance: DEFIBROTIDE SODIUM
     Indication: VENOOCCLUSIVE DISEASE

REACTIONS (7)
  - Hypovolaemia [Recovered/Resolved with Sequelae]
  - Septic shock [Fatal]
  - Acute kidney injury [Recovered/Resolved with Sequelae]
  - Diarrhoea [Recovered/Resolved with Sequelae]
  - Infection [Fatal]
  - Systemic candida [Recovered/Resolved with Sequelae]
  - Embolism [Unknown]

NARRATIVE: CASE EVENT DATE: 20170218
